FAERS Safety Report 21060825 (Version 10)
Quarter: 2023Q2

REPORT INFORMATION
  Report Type: Spontaneous
  Country: US (occurrence: US)
  Receive Date: 20220709
  Receipt Date: 20230623
  Transmission Date: 20230722
  Serious: Yes (Hospitalization, Other)
  Sender: FDA-Public Use
  Company Number: US-BRISTOL-MYERS SQUIBB COMPANY-2022-070007

PATIENT
  Age: 58 Year
  Sex: Female

DRUGS (4)
  1. POMALYST [Suspect]
     Active Substance: POMALIDOMIDE
     Indication: Plasma cell myeloma
     Route: 048
     Dates: start: 20191126
  2. POMALYST [Suspect]
     Active Substance: POMALIDOMIDE
     Dosage: FREQUENCY: OTHERS.
     Route: 048
     Dates: start: 202111, end: 202209
  3. POMALYST [Suspect]
     Active Substance: POMALIDOMIDE
     Route: 048
     Dates: start: 202305
  4. LEVOTHYROXINE [Suspect]
     Active Substance: LEVOTHYROXINE
     Indication: Product used for unknown indication

REACTIONS (19)
  - Diarrhoea [Unknown]
  - Decreased appetite [Unknown]
  - Neuropathy peripheral [Not Recovered/Not Resolved]
  - Macule [Unknown]
  - Pain [Unknown]
  - Fatigue [Unknown]
  - Insomnia [Unknown]
  - Muscular weakness [Unknown]
  - Arthralgia [Unknown]
  - Pain in extremity [Unknown]
  - Muscle spasms [Unknown]
  - Bronchitis [Unknown]
  - Atrial fibrillation [Unknown]
  - Urinary tract infection [Unknown]
  - Pneumonia [Recovered/Resolved]
  - Influenza [Unknown]
  - Pleural effusion [Unknown]
  - Thrombosis [Unknown]
  - Cardiac disorder [Unknown]

NARRATIVE: CASE EVENT DATE: 20220101
